FAERS Safety Report 17450477 (Version 2)
Quarter: 2020Q1

REPORT INFORMATION
  Report Type: Spontaneous
  Country: PT (occurrence: PT)
  Receive Date: 20200224
  Receipt Date: 20200320
  Transmission Date: 20200409
  Serious: Yes (Life-Threatening, Hospitalization, Other)
  Sender: FDA-Public Use
  Company Number: PT-TEVA-2020-PT-1189276

PATIENT
  Age: 58 Year
  Sex: Male

DRUGS (3)
  1. OLMESARTAN / HYDROCHLOROTHIAZIDE [Concomitant]
     Dosage: 1 DOSAGE FORM IS COMPOSED 20/12.5MG
     Route: 048
  2. ATORVASTATIN [Suspect]
     Active Substance: ATORVASTATIN
     Route: 048
  3. LEVOTHYROXINE. [Concomitant]
     Active Substance: LEVOTHYROXINE
     Dosage: 100MCG
     Route: 048

REACTIONS (1)
  - Immune-mediated myositis [Recovering/Resolving]
